FAERS Safety Report 20898398 (Version 1)
Quarter: 2022Q2

REPORT INFORMATION
  Report Type: Spontaneous
  Country: US (occurrence: US)
  Receive Date: 20220601
  Receipt Date: 20220601
  Transmission Date: 20220721
  Serious: Yes (Hospitalization)
  Sender: FDA-Public Use
  Company Number: US-MALLINCKRODT-T202202629

PATIENT
  Sex: Male
  Weight: 8 kg

DRUGS (6)
  1. H.P. ACTHAR [Suspect]
     Active Substance: CORTICOTROPIN
     Indication: Infantile spasms
     Dosage: 0.85 MILLILITER (68 UNITS), QD
     Route: 030
     Dates: start: 20220428, end: 20220511
  2. H.P. ACTHAR [Suspect]
     Active Substance: CORTICOTROPIN
     Dosage: 0.18 MILLILITER (14 UNITS), QD
     Route: 030
     Dates: start: 20220512, end: 20220514
  3. H.P. ACTHAR [Suspect]
     Active Substance: CORTICOTROPIN
     Dosage: 0.09 MILLILITER (7 UNITS), QD
     Route: 030
     Dates: start: 20220515, end: 20220517
  4. H.P. ACTHAR [Suspect]
     Active Substance: CORTICOTROPIN
     Dosage: 0.06 MILLILITER (5 UNITS), QD
     Route: 030
     Dates: start: 20220518, end: 20220520
  5. H.P. ACTHAR [Suspect]
     Active Substance: CORTICOTROPIN
     Dosage: 0.06 MILLILITER (5 UNITS), EVERY OTHER DAY
     Route: 030
     Dates: start: 20220521
  6. PREVACID [Concomitant]
     Active Substance: LANSOPRAZOLE
     Indication: Product used for unknown indication
     Dosage: UNK
     Route: 065

REACTIONS (1)
  - Hospitalisation [Unknown]

NARRATIVE: CASE EVENT DATE: 20220101
